FAERS Safety Report 15156433 (Version 1)
Quarter: 2018Q3

REPORT INFORMATION
  Report Type: Spontaneous
  Country: US (occurrence: US)
  Receive Date: 20180717
  Receipt Date: 20180717
  Transmission Date: 20181010
  Serious: No
  Sender: FDA-Public Use
  Company Number: US-ACTELION-A-NJ2018-175331

PATIENT

DRUGS (1)
  1. VELETRI [Suspect]
     Active Substance: EPOPROSTENOL
     Indication: OCCUPATIONAL EXPOSURE TO PRODUCT
     Route: 061

REACTIONS (3)
  - Loss of consciousness [Unknown]
  - Occupational exposure to product [Unknown]
  - Hypotension [Unknown]
